FAERS Safety Report 5284295-0 (Version None)
Quarter: 2007Q1

REPORT INFORMATION
  Report Type: 
  Country: None (occurrence: None)
  Receive Date: 20070314
  Receipt Date: 20070207
  Transmission Date: 20070707
  Serious: Yes (Death, Life-Threatening, Hospitalization, Disabling)
  Sender: FDA-Public Use
  Company Number: WSDF_00597

PATIENT
  Age: 81 Year
  Sex: Female

DRUGS (1)
  1. WINRHO SDF [Suspect]
     Indication: IDIOPATHIC THROMBOCYTOPENIC PURPURA
     Dosage: 4000 MCG ONCE; IV
     Route: 042
     Dates: start: 20061108, end: 20061108

REACTIONS (25)
  - BLOOD URINE PRESENT [None]
  - CARDIAC FAILURE CONGESTIVE [None]
  - CARDIO-RESPIRATORY ARREST [None]
  - CEREBRAL ATROPHY [None]
  - CEREBRAL HAEMORRHAGE [None]
  - CHEST PAIN [None]
  - CHILLS [None]
  - ECCHYMOSIS [None]
  - EPIGASTRIC DISCOMFORT [None]
  - GALLBLADDER DISORDER [None]
  - HAEMOLYTIC ANAEMIA [None]
  - HEPATIC CYST [None]
  - INFECTION [None]
  - LEUKOPLAKIA [None]
  - MARROW HYPERPLASIA [None]
  - METABOLIC ENCEPHALOPATHY [None]
  - NO THERAPEUTIC RESPONSE [None]
  - PAIN IN EXTREMITY [None]
  - PNEUMONIA ASPIRATION [None]
  - PO2 DECREASED [None]
  - RED BLOOD CELLS URINE POSITIVE [None]
  - SINUS TACHYCARDIA [None]
  - STATUS EPILEPTICUS [None]
  - TROPONIN INCREASED [None]
  - URINARY TRACT INFECTION [None]
